FAERS Safety Report 17028114 (Version 2)
Quarter: 2020Q1

REPORT INFORMATION
  Report Type: Spontaneous
  Country: JP (occurrence: JP)
  Receive Date: 20191113
  Receipt Date: 20200129
  Transmission Date: 20200409
  Serious: Yes (Hospitalization, Other)
  Sender: FDA-Public Use
  Company Number: NVSJ2019JP002104

PATIENT
  Age: 17 Month
  Sex: Female

DRUGS (1)
  1. NEORAL [Suspect]
     Active Substance: CYCLOSPORINE
     Indication: NEPHROTIC SYNDROME
     Dosage: UNK
     Route: 065

REACTIONS (12)
  - Movement disorder [Recovered/Resolved]
  - End stage renal disease [Unknown]
  - Nephrotic syndrome [Unknown]
  - Dyspraxia [Recovered/Resolved]
  - Seizure [Unknown]
  - Regressive behaviour [Unknown]
  - Fluid overload [Unknown]
  - Focal dyscognitive seizures [Unknown]
  - Respiratory failure [Unknown]
  - Hyperlactacidaemia [Unknown]
  - Mitochondrial encephalomyopathy [Unknown]
  - Focal segmental glomerulosclerosis [Unknown]
